FAERS Safety Report 12297000 (Version 1)
Quarter: 2016Q2

REPORT INFORMATION
  Report Type: Spontaneous
  Country: US (occurrence: US)
  Receive Date: 20160422
  Receipt Date: 20160422
  Transmission Date: 20160815
  Serious: No
  Sender: FDA-Public Use
  Company Number: US-SA-2016SA031874

PATIENT
  Sex: Female

DRUGS (1)
  1. AFREZZA [Suspect]
     Active Substance: INSULIN HUMAN
     Dosage: FREQUENCY: 1?ROUTE: INHALED

REACTIONS (2)
  - Swollen tongue [Recovered/Resolved]
  - Mouth swelling [Recovered/Resolved]
